FAERS Safety Report 8789527 (Version 1)
Quarter: 2012Q4

REPORT INFORMATION
  Report Type: Spontaneous
  Country: US (occurrence: None)
  Receive Date: 20120910
  Receipt Date: 20120910
  Transmission Date: 20130627
  Serious: Yes (Other)
  Sender: FDA-Public Use
  Company Number: None

PATIENT
  Age: 9 Year
  Sex: Female
  Weight: 38.37 kg

DRUGS (1)
  1. VYVANSE [Suspect]
     Indication: ATTENTION DEFICIT-HYPERACTIVITY DISORDER
     Dates: start: 20120905, end: 20120905

REACTIONS (10)
  - Paraesthesia [None]
  - Pain in extremity [None]
  - Muscular weakness [None]
  - Anxiety [None]
  - Fear [None]
  - Vision blurred [None]
  - Headache [None]
  - Hyperaesthesia [None]
  - Blood pressure increased [None]
  - Cerebrovascular accident [None]
